FAERS Safety Report 8404781-1 (Version None)
Quarter: 2012Q2

REPORT INFORMATION
  Report Type: 
  Country: None (occurrence: None)
  Receive Date: 20120601
  Receipt Date: 20120522
  Transmission Date: 20120825
  Serious: No
  Sender: FDA-Public Use
  Company Number: US-ASTRAZENECA-2012SE32881

PATIENT
  Age: 42 Year
  Sex: Female
  Weight: 86.2 kg

DRUGS (4)
  1. SEROQUEL [Suspect]
     Indication: BIPOLAR DISORDER
     Route: 048
     Dates: start: 20111001, end: 20120201
  2. SEROQUEL [Suspect]
     Route: 048
  3. CLONAZEPAM [Concomitant]
  4. LYRICA [Concomitant]

REACTIONS (6)
  - BLOOD INSULIN INCREASED [None]
  - WEIGHT INCREASED [None]
  - HEADACHE [None]
  - MIGRAINE [None]
  - EYE PAIN [None]
  - SOMNOLENCE [None]
